FAERS Safety Report 6073853-1 (Version None)
Quarter: 2009Q1

REPORT INFORMATION
  Report Type: 
  Country: None (occurrence: None)
  Receive Date: 20090209
  Receipt Date: 20090209
  Transmission Date: 20090719
  Serious: Yes (Hospitalization)
  Sender: FDA-Public Use
  Company Number: None

PATIENT
  Age: 68 Year
  Sex: Female
  Weight: 65.7716 kg

DRUGS (1)
  1. ACTONEL [Suspect]
     Indication: BONE DENSITY DECREASED
     Dosage: T TABLET MONTHLY PO
     Route: 048
     Dates: start: 20071011, end: 20090111

REACTIONS (3)
  - DIZZINESS [None]
  - HAEMATEMESIS [None]
  - VOMITING [None]
